FAERS Safety Report 14853439 (Version 1)
Quarter: 2018Q2

REPORT INFORMATION
  Report Type: Spontaneous
  Country: US (occurrence: US)
  Receive Date: 20180507
  Receipt Date: 20180507
  Transmission Date: 20180711
  Serious: Yes (Other)
  Sender: FDA-Public Use
  Company Number: US-PFIZER INC-2018185283

PATIENT
  Age: 7 Year
  Sex: Male

DRUGS (1)
  1. XYNTHA [Suspect]
     Active Substance: ANTIHEMOPHILIC FACTOR, HUMAN RECOMBINANT RESIDUES 743-1636 DELETED
     Indication: HAEMORRHAGE
     Dosage: 1690 IU, AS NEEDED (X3 TIMES A WEEK, AND AS NEEDED)

REACTIONS (3)
  - Epistaxis [Unknown]
  - Haemarthrosis [Unknown]
  - Pain in extremity [Unknown]
